FAERS Safety Report 7347726-8 (Version None)
Quarter: 2011Q1

REPORT INFORMATION
  Report Type: 
  Country: None (occurrence: None)
  Receive Date: 20110311
  Receipt Date: 20110303
  Transmission Date: 20110831
  Serious: Yes (Hospitalization)
  Sender: FDA-Public Use
  Company Number: B0705302A

PATIENT
  Sex: Female
  Weight: 77 kg

DRUGS (3)
  1. LENALIDOMIDE [Suspect]
     Indication: MULTIPLE MYELOMA
     Dosage: 10MG PER DAY
     Route: 048
     Dates: start: 20070829, end: 20071016
  2. PREDNISONE TAB [Suspect]
     Indication: MULTIPLE MYELOMA
     Dosage: 154MG PER DAY
     Route: 048
     Dates: start: 20070829, end: 20090929
  3. MELPHALAN [Suspect]
     Indication: MULTIPLE MYELOMA
     Dosage: 14MG PER DAY
     Route: 048
     Dates: start: 20070829, end: 20070929

REACTIONS (4)
  - TACHYCARDIA [None]
  - PULMONARY EMBOLISM [None]
  - DECREASED APPETITE [None]
  - ASTHENIA [None]
